FAERS Safety Report 7360287-2 (Version None)
Quarter: 2011Q1

REPORT INFORMATION
  Report Type: 
  Country: None (occurrence: None)
  Receive Date: 20110310
  Receipt Date: 20110301
  Transmission Date: 20110831
  Serious: Yes (Hospitalization)
  Sender: FDA-Public Use
  Company Number: UTC-005447

PATIENT
  Age: 72 Year
  Sex: Male
  Weight: 81.4 kg

DRUGS (5)
  1. TRACLEER [Concomitant]
  2. REMODULIN [Suspect]
  3. DIURETICS (DIURETICS [Concomitant]
  4. REMODULIN [Suspect]
     Dosage: 66.24 UG/KG (0.046 UG/KG,L IN 1 MIN),SUBCUTANEOUS
     Dates: start: 20100331
  5. COUMADIN [Concomitant]

REACTIONS (2)
  - RESPIRATORY DISTRESS [None]
  - EPISTAXIS [None]
